FAERS Safety Report 8486468-2 (Version None)
Quarter: 2012Q3

REPORT INFORMATION
  Report Type: 
  Country: None (occurrence: None)
  Receive Date: 20120703
  Receipt Date: 20120629
  Transmission Date: 20120928
  Serious: Yes (Other)
  Sender: FDA-Public Use
  Company Number: GB-PFIZER INC-2011226680

PATIENT
  Age: 19 Year
  Sex: Male

DRUGS (2)
  1. GALENIC /ISONIAZID/RIFAMPICIN/ [Suspect]
     Indication: BONE TUBERCULOSIS
  2. GALENIC /ISONIAZID/RIFAMPICIN/ [Suspect]
     Indication: PULMONARY TUBERCULOSIS

REACTIONS (2)
  - ACUTE HEPATIC FAILURE [None]
  - TRANSPLANT FAILURE [None]
